FAERS Safety Report 10246669 (Version 1)
Quarter: 2014Q2

REPORT INFORMATION
  Report Type: Report from Study
  Country: CA (occurrence: CA)
  Receive Date: 20140619
  Receipt Date: 20140619
  Transmission Date: 20141212
  Serious: Yes (Hospitalization)
  Sender: FDA-Public Use
  Company Number: CA-PFIZER INC-2014164082

PATIENT
  Age: 54 Year
  Sex: Female

DRUGS (10)
  1. DOXORUBICIN HCL [Suspect]
     Dosage: 50 MG/M2, 1 EVERY 3 WEEKS
     Route: 042
  2. CYCLOPHOSPHAMIDE [Suspect]
     Dosage: 500 MG/M2, 1 EVERY 3 WEEKS
     Route: 042
  3. CYCLOPHOSPHAMIDE [Suspect]
     Dosage: 500 MG/M2, 1 EVERY 3 WEEKS
     Route: 042
  4. DOCETAXEL [Suspect]
     Dosage: 75 MG/M2, 1 EVERY 3 WEEKS
     Route: 042
  5. DOCETAXEL [Suspect]
     Dosage: 75 MG/M2, 1 EVERY 3 WEEKS
     Route: 042
  6. CIPROFLOXACIN [Concomitant]
  7. DEXAMETHASONE [Concomitant]
  8. GRANULOCYTE COLONY-STIMULATING FACTOR NOS [Concomitant]
  9. ONDANSETRON [Concomitant]
  10. STEMETIL [Concomitant]

REACTIONS (4)
  - Anaemia [Recovered/Resolved]
  - Dyspnoea [Recovered/Resolved]
  - Fatigue [Recovered/Resolved]
  - PO2 decreased [Recovered/Resolved]
